FAERS Safety Report 4942155-6 (Version None)
Quarter: 2006Q1

REPORT INFORMATION
  Report Type: 
  Country: None (occurrence: None)
  Receive Date: 20060313
  Receipt Date: 20050802
  Transmission Date: 20060701
  Serious: No
  Sender: FDA-Public Use
  Company Number: US-GLAXOSMITHKLINE-A0568743A

PATIENT
  Age: 83 Year
  Sex: Female

DRUGS (1)
  1. EQUATE NICOTINE GUM 2MG [Suspect]

REACTIONS (3)
  - DRUG ABUSER [None]
  - DRUG WITHDRAWAL SYNDROME [None]
  - FEELING JITTERY [None]
